FAERS Safety Report 5926323-2 (Version None)
Quarter: 2008Q4

REPORT INFORMATION
  Report Type: 
  Country: None (occurrence: None)
  Receive Date: 20081022
  Receipt Date: 20081013
  Transmission Date: 20090506
  Serious: Yes (Hospitalization, Other)
  Sender: FDA-Public Use
  Company Number: ES-JNJFOC-20080801340

PATIENT
  Age: 12 Year
  Sex: Female
  Weight: 21 kg

DRUGS (8)
  1. REMICADE [Suspect]
     Route: 042
  2. REMICADE [Suspect]
     Dosage: 440 MG DOSE
     Route: 042
  3. REMICADE [Suspect]
     Dosage: 440 MG DOSE
     Route: 042
  4. REMICADE [Suspect]
     Indication: JUVENILE ARTHRITIS
     Dosage: 440 MG DOSE
     Route: 042
  5. GROWTH HORMONE [Suspect]
     Indication: JUVENILE ARTHRITIS
  6. PREDNISONE [Concomitant]
     Indication: DRUG USE FOR UNKNOWN INDICATION
     Route: 048
  7. INDOMETHACIN [Concomitant]
     Indication: ARTHRITIS
     Route: 048
  8. METHOTREXATE [Concomitant]
     Indication: ARTHRITIS
     Route: 048

REACTIONS (3)
  - ARTHRITIS [None]
  - DRUG INEFFECTIVE [None]
  - INTRACRANIAL PRESSURE INCREASED [None]
